FAERS Safety Report 12437700 (Version 1)
Quarter: 2016Q2

REPORT INFORMATION
  Report Type: Spontaneous
  Country: US (occurrence: None)
  Receive Date: 20160603
  Receipt Date: 20160603
  Transmission Date: 20160815
  Serious: Yes (Hospitalization)
  Sender: FDA-Public Use
  Company Number: None

PATIENT
  Age: 71 Year
  Sex: Female
  Weight: 160 kg

DRUGS (2)
  1. DIPHENHYDRAMINE. [Suspect]
     Active Substance: DIPHENHYDRAMINE
     Indication: HYPERSENSITIVITY
     Dosage: 25 MG X2 IV, PO
     Dates: start: 20160210
  2. CEFTRIAXONE. [Suspect]
     Active Substance: CEFTRIAXONE
     Indication: BETA HAEMOLYTIC STREPTOCOCCAL INFECTION
     Route: 042
     Dates: start: 20160210

REACTIONS (5)
  - Myoclonus [None]
  - Muscle twitching [None]
  - Hypotension [None]
  - Tremor [None]
  - Mental status changes [None]

NARRATIVE: CASE EVENT DATE: 20160210
